FAERS Safety Report 21094007 (Version 1)
Quarter: 2022Q3

REPORT INFORMATION
  Report Type: Report from Study
  Country: US (occurrence: US)
  Receive Date: 20220718
  Receipt Date: 20220718
  Transmission Date: 20221027
  Serious: Yes (Hospitalization, Other)
  Sender: FDA-Public Use
  Company Number: US-BRISTOL-MYERS SQUIBB COMPANY-2022-070766

PATIENT
  Age: 69 Year
  Sex: Female
  Weight: 61.2 kg

DRUGS (1)
  1. POMALYST [Suspect]
     Active Substance: POMALIDOMIDE
     Indication: Plasma cell myeloma
     Dosage: FOR 3 WEEKS ON AND 1 WEEK OFF
     Route: 048

REACTIONS (1)
  - Nephrolithiasis [Unknown]
